FAERS Safety Report 9299366 (Version 2)
Quarter: 2013Q4

REPORT INFORMATION
  Report Type: Spontaneous
  Country: US (occurrence: US)
  Receive Date: 20130520
  Receipt Date: 20131108
  Transmission Date: 20140711
  Serious: Yes (Hospitalization)
  Sender: FDA-Public Use
  Company Number: US-B.I. PHARMACEUTICALS,INC./RIDGEFIELD-2013-BI-13757BP

PATIENT
  Sex: Male
  Weight: 129.27 kg

DRUGS (18)
  1. PRADAXA [Suspect]
     Indication: ANTICOAGULANT THERAPY
     Dosage: 300 MG
     Route: 048
     Dates: start: 20110520, end: 20120316
  2. ZOCOR [Concomitant]
  3. POTASSIUM [Concomitant]
  4. VICODIN [Concomitant]
  5. ALLEGRA [Concomitant]
  6. ASPIRIN [Concomitant]
  7. BYETTA [Concomitant]
  8. GLUCOPHAGE [Concomitant]
  9. GLYBURIDE [Concomitant]
  10. UROXATRAL [Concomitant]
  11. BUMEX [Concomitant]
  12. SOTALOL [Concomitant]
  13. COZAAR [Concomitant]
  14. COLACE [Concomitant]
  15. METAMUCIL [Concomitant]
  16. ALDARA [Concomitant]
  17. ATROVENT INHALER [Concomitant]
  18. PROCRIT [Concomitant]

REACTIONS (2)
  - Gastrointestinal haemorrhage [Unknown]
  - Haemorrhagic anaemia [Unknown]
